FAERS Safety Report 12430883 (Version 1)
Quarter: 2016Q2

REPORT INFORMATION
  Report Type: Spontaneous
  Country: US (occurrence: US)
  Receive Date: 20160602
  Receipt Date: 20160602
  Transmission Date: 20160815
  Serious: No
  Sender: FDA-Public Use
  Company Number: US-TEVA-663227USA

PATIENT
  Sex: Female

DRUGS (5)
  1. COPAXONE [Suspect]
     Active Substance: GLATIRAMER ACETATE
     Indication: MULTIPLE SCLEROSIS
     Route: 058
     Dates: start: 20160315
  2. VITAMAIN C [Concomitant]
  3. SYNTHROID [Concomitant]
     Active Substance: LEVOTHYROXINE SODIUM
  4. IRON [Concomitant]
     Active Substance: IRON
  5. PRENATAL [Concomitant]
     Active Substance: VITAMINS

REACTIONS (3)
  - Injection site reaction [Unknown]
  - Injection site urticaria [Unknown]
  - Injection site bruising [Unknown]
